FAERS Safety Report 8233639-6 (Version None)
Quarter: 2012Q1

REPORT INFORMATION
  Report Type: 
  Country: None (occurrence: None)
  Receive Date: 20120326
  Receipt Date: 20120312
  Transmission Date: 20120608
  Serious: Yes (Other)
  Sender: FDA-Public Use
  Company Number: PT-MYLANLABS-2012S1005762

PATIENT
  Age: 21 Year
  Sex: Female

DRUGS (1)
  1. REMIFENTANIL [Suspect]
     Indication: LABOUR PAIN
     Route: 040

REACTIONS (7)
  - ACCIDENTAL OVERDOSE [None]
  - DEVICE FAILURE [None]
  - RESPIRATORY DEPRESSION [None]
  - CAESAREAN SECTION [None]
  - DEPRESSED LEVEL OF CONSCIOUSNESS [None]
  - HYPOTENSION [None]
  - MATERNAL EXPOSURE DURING PREGNANCY [None]
